FAERS Safety Report 5334304-5 (Version None)
Quarter: 2007Q2

REPORT INFORMATION
  Report Type: 
  Country: None (occurrence: None)
  Receive Date: 20070306
  Receipt Date: 20051219
  Transmission Date: 20071010
  Serious: Yes (Hospitalization)
  Sender: FDA-Public Use
  Company Number: A03200504314

PATIENT
  Age: 80 Year
  Sex: Female
  Weight: 65.76 kg

DRUGS (7)
  1. PLAVIX [Suspect]
     Indication: ANTICOAGULANT THERAPY
     Dosage: 75 MG ONCE - ORAL
     Route: 048
     Dates: start: 20051203, end: 20051203
  2. PLAVIX [Suspect]
     Indication: CEREBROVASCULAR ACCIDENT PROPHYLAXIS
     Dosage: 75 MG ONCE - ORAL
     Route: 048
     Dates: start: 20051203, end: 20051203
  3. ROSUVASTATIN [Concomitant]
  4. CANDESARTAN CILEXETIL [Concomitant]
  5. ACETYLSALICYLIC ACID SRT [Concomitant]
  6. LEVOTHYROXINE SODIUM [Concomitant]
  7. MULTIVITAMIN AND CALCIUM [Concomitant]

REACTIONS (2)
  - DYSPNOEA [None]
  - SOMNOLENCE [None]
